FAERS Safety Report 14058277 (Version 3)
Quarter: 2018Q1

REPORT INFORMATION
  Report Type: Report from Study
  Country: US (occurrence: US)
  Receive Date: 20171006
  Receipt Date: 20180130
  Transmission Date: 20180508
  Serious: Yes (Death, Hospitalization, Other)
  Sender: FDA-Public Use
  Company Number: US-GILEAD-2017-0296321

PATIENT

DRUGS (12)
  1. ALTACE [Concomitant]
     Active Substance: RAMIPRIL
  2. BUMETANIDE. [Concomitant]
     Active Substance: BUMETANIDE
  3. HUMALOG [Concomitant]
     Active Substance: INSULIN LISPRO
  4. TIKOSYN [Concomitant]
     Active Substance: DOFETILIDE
  5. LANTUS [Concomitant]
     Active Substance: INSULIN GLARGINE
  6. ALDACTONE [Concomitant]
     Active Substance: SPIRONOLACTONE
  7. ASPIRIN                            /00002701/ [Concomitant]
     Active Substance: ASPIRIN
  8. RANOLAZINE. [Suspect]
     Active Substance: RANOLAZINE
     Indication: VENTRICULAR ARRHYTHMIA
     Route: 065
  9. COREG [Concomitant]
     Active Substance: CARVEDILOL
  10. LIPITOR [Concomitant]
     Active Substance: ATORVASTATIN CALCIUM
  11. COUMADIN [Concomitant]
     Active Substance: WARFARIN SODIUM
  12. MAGNESIUM [Concomitant]
     Active Substance: MAGNESIUM

REACTIONS (3)
  - Cardiac failure [Fatal]
  - Pulmonary oedema [Unknown]
  - Cardiac failure [Unknown]

NARRATIVE: CASE EVENT DATE: 20150310
